FAERS Safety Report 8015974-X (Version None)
Quarter: 2011Q4

REPORT INFORMATION
  Report Type: 
  Country: None (occurrence: None)
  Receive Date: 20111230
  Receipt Date: 20111228
  Transmission Date: 20120403
  Serious: Yes (Hospitalization, Other)
  Sender: FDA-Public Use
  Company Number: US-ABBOTT-09P-163-0614210-00

PATIENT
  Sex: Female
  Weight: 72.64 kg

DRUGS (22)
  1. HUMIRA [Suspect]
     Route: 050
     Dates: start: 20070615, end: 20070718
  2. CEPHALEXIN [Concomitant]
     Route: 048
     Dates: start: 20080111, end: 20080121
  3. LORTAB [Concomitant]
     Indication: PAIN
     Route: 048
     Dates: start: 20080124, end: 20080207
  4. ALCOHOL [Concomitant]
     Dosage: 5 SERVINGS
     Dates: start: 20070705, end: 20070718
  5. FLAGYL [Concomitant]
     Indication: FISTULA
     Route: 048
  6. PREDNISONE TAB [Concomitant]
     Route: 048
     Dates: start: 20070615, end: 20070901
  7. CEPHALEXIN [Concomitant]
     Indication: ANTIBIOTIC PROPHYLAXIS
     Route: 048
     Dates: start: 20071215, end: 20071222
  8. CAFFEINE CITRATE [Concomitant]
     Indication: PRODUCT USED FOR UNKNOWN INDICATION
     Dosage: 1.5 SERVING
     Route: 048
  9. RED BULL ENERGY DRINK [Concomitant]
     Indication: PRODUCT USED FOR UNKNOWN INDICATION
  10. FOLIC ACID [Concomitant]
     Indication: PRODUCT USED FOR UNKNOWN INDICATION
     Route: 048
  11. CALCIUM CARBONATE [Concomitant]
     Indication: PAIN
     Dates: start: 20070915, end: 20070915
  12. HUMIRA [Suspect]
     Indication: CROHN'S DISEASE
     Route: 050
     Dates: start: 20070930, end: 20080307
  13. PREDNISONE TAB [Concomitant]
     Indication: CROHN'S DISEASE
     Route: 048
     Dates: start: 20070902
  14. ACETAMINOPHEN [Concomitant]
     Indication: PAIN
     Route: 048
     Dates: end: 20080122
  15. ALCOHOL [Concomitant]
     Indication: PRODUCT USED FOR UNKNOWN INDICATION
     Dosage: 12 SERVINGS
     Dates: start: 20070704, end: 20070704
  16. ACETAMINOPHEN [Concomitant]
     Indication: CROHN'S DISEASE
  17. LORTAB [Concomitant]
  18. ALCOHOL [Concomitant]
     Dosage: 5 SERVINGS
     Dates: end: 20090703
  19. MULTI-VITAMINS [Concomitant]
     Indication: PRODUCT USED FOR UNKNOWN INDICATION
     Route: 048
  20. PERCOCET [Concomitant]
     Indication: PAIN
     Route: 048
  21. FLUZONE [Concomitant]
     Indication: PRODUCT USED FOR UNKNOWN INDICATION
     Route: 050
     Dates: start: 20071110, end: 20071110
  22. CALCIUM CARBONATE [Concomitant]
     Indication: DYSPEPSIA
     Route: 048
     Dates: start: 20071115

REACTIONS (9)
  - CATHETER PLACEMENT [None]
  - PAIN [None]
  - RESPIRATORY TRACT INFECTION [None]
  - ANAL FISSURE [None]
  - ANAL ABSCESS [None]
  - FISTULA [None]
  - DEHYDRATION [None]
  - ABSCESS [None]
  - THERAPEUTIC PROCEDURE [None]
